FAERS Safety Report 5488433-6 (Version None)
Quarter: 2007Q4

REPORT INFORMATION
  Report Type: 
  Country: None (occurrence: None)
  Receive Date: 20071017
  Receipt Date: 20071010
  Transmission Date: 20080405
  Serious: Yes (Hospitalization, Other)
  Sender: FDA-Public Use
  Company Number: AU-AVENTIS-200719407GDDC

PATIENT
  Age: 66 Year
  Sex: Male

DRUGS (4)
  1. LANTUS [Suspect]
  2. AUTOPEN INSULIN INJECTION PEN [Suspect]
  3. METFORMIN [Concomitant]
  4. AMARYL [Concomitant]

REACTIONS (1)
  - MYOCARDIAL INFARCTION [None]
